FAERS Safety Report 8605089-1 (Version None)
Quarter: 2012Q3

REPORT INFORMATION
  Report Type: 
  Country: None (occurrence: None)
  Receive Date: 20120820
  Receipt Date: 20120814
  Transmission Date: 20120928
  Serious: No
  Sender: FDA-Public Use
  Company Number: US-PFIZER INC-2012176573

PATIENT
  Age: 48 Year
  Sex: Female
  Weight: 86.168 kg

DRUGS (5)
  1. DEXILANT [Concomitant]
     Indication: GASTRIC DISORDER
     Dosage: UNK
  2. DEXILANT [Concomitant]
     Indication: ULCER HAEMORRHAGE
  3. PRISTIQ [Suspect]
     Indication: DEPRESSION
     Dosage: 50 MG, 1X/DAY
     Route: 048
     Dates: start: 20100301, end: 20110401
  4. ZOLOFT [Suspect]
     Indication: DEPRESSION
     Dosage: UNK, 1X/DAY
     Route: 048
  5. FOSAMAX [Suspect]
     Indication: BONE DEVELOPMENT ABNORMAL
     Dosage: UNK, WEEKLY
     Route: 048
     Dates: start: 20070101, end: 20070101

REACTIONS (9)
  - MALAISE [None]
  - CRYING [None]
  - VOMITING [None]
  - PYREXIA [None]
  - NAUSEA [None]
  - HEADACHE [None]
  - WITHDRAWAL SYNDROME [None]
  - EMOTIONAL DISORDER [None]
  - MOOD SWINGS [None]
